FAERS Safety Report 9856072 (Version 3)
Quarter: 2014Q2

REPORT INFORMATION
  Report Type: Spontaneous
  Country: JP (occurrence: JP)
  Receive Date: 20140130
  Receipt Date: 20140403
  Transmission Date: 20141212
  Serious: Yes (Hospitalization)
  Sender: FDA-Public Use
  Company Number: JP-MYLANLABS-2014S1001277

PATIENT
  Age: 44 Year
  Sex: Female
  Weight: 57.3 kg

DRUGS (6)
  1. CARBOPLATIN [Suspect]
     Indication: OVARIAN CANCER
     Dosage: AUC 6
     Route: 041
     Dates: start: 20140107, end: 20140107
  2. PACLITAXEL [Concomitant]
     Indication: OVARIAN CANCER
     Dosage: 100 MG INJECTION
     Route: 041
     Dates: start: 20140116, end: 20140116
  3. PACLITAXEL [Concomitant]
     Indication: OVARIAN CANCER
     Dosage: 100 MG INJECTION
     Route: 041
     Dates: start: 20140116, end: 20140116
  4. PACLITAXEL [Concomitant]
     Indication: OVARIAN CANCER
     Route: 041
     Dates: start: 20140107, end: 20140107
  5. WARFARIN [Concomitant]
     Indication: PULMONARY EMBOLISM
     Route: 048
     Dates: start: 20131227
  6. HEPARIN [Concomitant]
     Indication: PULMONARY EMBOLISM
     Route: 042
     Dates: start: 20131219

REACTIONS (1)
  - Renal failure acute [Recovered/Resolved]
